FAERS Safety Report 8502124-6 (Version None)
Quarter: 2012Q3

REPORT INFORMATION
  Report Type: 
  Country: None (occurrence: None)
  Receive Date: 20120711
  Receipt Date: 20120627
  Transmission Date: 20120928
  Serious: Yes (Hospitalization, Disabling)
  Sender: FDA-Public Use
  Company Number: GR-JNJFOC-20100300554

PATIENT
  Sex: Female
  Weight: 96 kg

DRUGS (9)
  1. VELCADE [Suspect]
     Dosage: DAYS 1,4,8,11 OF CYCLE
     Route: 042
     Dates: start: 20091214
  2. VELCADE [Suspect]
     Dosage: DAYS 1,4,8,11 OF CYCLE
     Route: 042
     Dates: start: 20100128
  3. DEXAMETHASONE [Suspect]
     Indication: MULTIPLE MYELOMA
     Dosage: DAYS 1-4, 9-12, 17-20 OF CYCLE
     Route: 048
     Dates: start: 20091030
  4. DOXORUBICIN HCL [Suspect]
     Dosage: ON DAY 1
     Route: 042
     Dates: start: 20091214
  5. DEXAMETHASONE [Suspect]
     Dosage: 1 IN 1 MONTH
     Route: 048
     Dates: start: 20100129
  6. DOXORUBICIN HCL [Suspect]
     Dosage: ON DAY 1
     Route: 042
     Dates: start: 20100128
  7. VELCADE [Suspect]
     Indication: MULTIPLE MYELOMA
     Dosage: DAYS 1,4,8,11 OF CYCLE
     Route: 042
     Dates: start: 20091030
  8. DEXAMETHASONE [Suspect]
     Dosage: DAYS 1-4
     Route: 048
     Dates: start: 20091214
  9. DOXORUBICIN HCL [Suspect]
     Indication: MULTIPLE MYELOMA
     Dosage: ON DAY 1
     Route: 042
     Dates: start: 20091030

REACTIONS (4)
  - NEUROPATHY PERIPHERAL [None]
  - MUSCULAR WEAKNESS [None]
  - MYALGIA [None]
  - NEURALGIA [None]
